FAERS Safety Report 18043789 (Version 1)
Quarter: 2020Q3

REPORT INFORMATION
  Report Type: Spontaneous
  Country: FR (occurrence: FR)
  Receive Date: 20200720
  Receipt Date: 20200720
  Transmission Date: 20201103
  Serious: Yes (Hospitalization)
  Sender: FDA-Public Use
  Company Number: NVSC2020FR202001

PATIENT
  Age: 41 Year
  Sex: Female

DRUGS (3)
  1. AMOXICILLINE ACIDE CLAVULANIQUE SANDOZ [Suspect]
     Active Substance: AMOXICILLIN\CLAVULANATE POTASSIUM
     Indication: CHONDRITIS
     Dosage: 3 G
     Route: 042
     Dates: start: 20200609, end: 20200612
  2. CEFTAZIDIME PANPHARMA [Suspect]
     Active Substance: CEFTAZIDIME
     Indication: CHONDRITIS
     Dosage: 3 G
     Route: 042
     Dates: start: 20200608, end: 20200612
  3. ORBENINE [Suspect]
     Active Substance: CLOXACILLIN SODIUM
     Indication: CHONDRITIS
     Dosage: 1500 MG
     Route: 048
     Dates: start: 20200608, end: 20200609

REACTIONS (1)
  - Acute generalised exanthematous pustulosis [Recovered/Resolved]

NARRATIVE: CASE EVENT DATE: 20200610
